FAERS Safety Report 17819438 (Version 1)
Quarter: 2020Q2

REPORT INFORMATION
  Report Type: Spontaneous
  Country: DE (occurrence: DE)
  Receive Date: 20200523
  Receipt Date: 20200523
  Transmission Date: 20200714
  Serious: Yes (Hospitalization, Other)
  Sender: FDA-Public Use
  Company Number: NVSC2020DE133421

PATIENT
  Age: 62 Year
  Sex: Female

DRUGS (6)
  1. LEMTRADA [Suspect]
     Active Substance: ALEMTUZUMAB
     Indication: PRODUCT USED FOR UNKNOWN INDICATION
     Dosage: 12 MG, QD
     Route: 041
     Dates: start: 20180221, end: 20180223
  2. LEVOTHYROXINE SODIUM. [Suspect]
     Active Substance: LEVOTHYROXINE SODIUM
     Indication: HYPERTHYROIDISM
     Dosage: 75 UG
     Route: 065
  3. LEMTRADA [Suspect]
     Active Substance: ALEMTUZUMAB
     Dosage: 12 MG, QD
     Route: 041
     Dates: start: 20170220, end: 20170224
  4. LEVETIRACETAM. [Suspect]
     Active Substance: LEVETIRACETAM
     Indication: PRODUCT USED FOR UNKNOWN INDICATION
     Dosage: 1000 MG
     Route: 065
     Dates: start: 20190712
  5. BACLOFEN. [Suspect]
     Active Substance: BACLOFEN
     Indication: MUSCLE SPASTICITY
     Dosage: 75 MG
     Route: 065
  6. FAMPYRA [Suspect]
     Active Substance: DALFAMPRIDINE
     Indication: VISUAL IMPAIRMENT
     Dosage: 20 MG
     Route: 065

REACTIONS (4)
  - Disturbance in attention [Recovered/Resolved]
  - Cholelithiasis [Recovered/Resolved]
  - Acute disseminated encephalomyelitis [Recovered/Resolved]
  - Focal dyscognitive seizures [Recovered/Resolved]

NARRATIVE: CASE EVENT DATE: 20190201
